FAERS Safety Report 20113302 (Version 1)
Quarter: 2021Q4

REPORT INFORMATION
  Report Type: Spontaneous
  Country: US (occurrence: None)
  Receive Date: 20211124
  Receipt Date: 20211124
  Transmission Date: 20220303
  Serious: Yes (Disabling)
  Sender: FDA-Public Use
  Company Number: None

PATIENT
  Age: 53 Year
  Sex: Female
  Weight: 69.75 kg

DRUGS (1)
  1. AMITRIPTYLINE [Suspect]
     Active Substance: AMITRIPTYLINE
     Indication: Nervous system disorder
     Dosage: FREQUENCY : AT BEDTIME;?
     Route: 048

REACTIONS (9)
  - Abdominal pain [None]
  - Gastrointestinal pain [None]
  - Muscle spasms [None]
  - Abdominal distension [None]
  - Diarrhoea [None]
  - Anxiety [None]
  - Panic attack [None]
  - Emotional disorder [None]
  - Mental disorder [None]

NARRATIVE: CASE EVENT DATE: 20200526
